FAERS Safety Report 8064047-9 (Version None)
Quarter: 2012Q1

REPORT INFORMATION
  Report Type: 
  Country: None (occurrence: None)
  Receive Date: 20120123
  Receipt Date: 20120118
  Transmission Date: 20120608
  Serious: Yes (Other)
  Sender: FDA-Public Use
  Company Number: DE-ABBOTT-11P-062-0876684-00

PATIENT
  Sex: Female
  Weight: 64 kg

DRUGS (3)
  1. HUMIRA [Suspect]
     Indication: CROHN'S DISEASE
     Dosage: 40 MG EOW
     Route: 058
     Dates: start: 20080625, end: 20081202
  2. HUMIRA [Suspect]
     Dosage: EVERY 2-3 WEEKS
     Route: 058
     Dates: start: 20111010, end: 20111110
  3. INSULIN [Concomitant]
     Indication: DIABETES MELLITUS
     Route: 058

REACTIONS (8)
  - INJECTION SITE REACTION [None]
  - INJECTION SITE SWELLING [None]
  - EMBOLIA CUTIS MEDICAMENTOSA [None]
  - SINUSITIS [None]
  - RESPIRATORY DISORDER [None]
  - INJECTION SITE ERYTHEMA [None]
  - PURULENT DISCHARGE [None]
  - INJECTION SITE PAIN [None]
